FAERS Safety Report 18326906 (Version 2)
Quarter: 2020Q4

REPORT INFORMATION
  Report Type: Spontaneous
  Country: US (occurrence: US)
  Receive Date: 20200929
  Receipt Date: 20201009
  Transmission Date: 20210113
  Serious: Yes (Other)
  Sender: FDA-Public Use
  Company Number: US-BAYER-2020-209814

PATIENT
  Age: 43 Year
  Sex: Female

DRUGS (2)
  1. MIRENA [Suspect]
     Active Substance: LEVONORGESTREL
     Indication: CONTRACEPTION
     Dosage: 20 ?G PER DAY, CONTINUOUSLY
     Route: 015
     Dates: start: 20191106
  2. MIRENA [Suspect]
     Active Substance: LEVONORGESTREL
     Indication: MENORRHAGIA

REACTIONS (8)
  - Tremor [None]
  - Embedded device [Not Recovered/Not Resolved]
  - Vulvovaginal pain [None]
  - Hypoaesthesia oral [None]
  - Vulvovaginal discomfort [None]
  - Urinary tract infection [None]
  - Dizziness [None]
  - Complication of device removal [None]

NARRATIVE: CASE EVENT DATE: 20200731
